FAERS Safety Report 12577038 (Version 2)
Quarter: 2016Q4

REPORT INFORMATION
  Report Type: Spontaneous
  Country: US (occurrence: US)
  Receive Date: 20160720
  Receipt Date: 20161019
  Transmission Date: 20170207
  Serious: No
  Sender: FDA-Public Use
  Company Number: US-OTSUKA-2016_014289

PATIENT
  Age: 35 Year
  Sex: Female

DRUGS (2)
  1. DEPAKOTE [Concomitant]
     Active Substance: DIVALPROEX SODIUM
     Indication: SEIZURE
     Dosage: UNK
     Route: 065
  2. REXULTI [Suspect]
     Active Substance: BREXPIPRAZOLE
     Indication: MAJOR DEPRESSION
     Dosage: 0.5 MG, QD
     Route: 048
     Dates: start: 20160610

REACTIONS (5)
  - Restlessness [Unknown]
  - Drug effect incomplete [Unknown]
  - Hallucination, auditory [Unknown]
  - Anger [Unknown]
  - Agitation [Unknown]

NARRATIVE: CASE EVENT DATE: 201606
